FAERS Safety Report 17931003 (Version 3)
Quarter: 2021Q4

REPORT INFORMATION
  Report Type: Spontaneous
  Country: DE (occurrence: DE)
  Receive Date: 20200623
  Receipt Date: 20211222
  Transmission Date: 20220303
  Serious: Yes (Other)
  Sender: FDA-Public Use
  Company Number: DE-002147023-NVSC2020DE092537

PATIENT
  Sex: Female
  Weight: 100 kg

DRUGS (40)
  1. RANITIDINE [Suspect]
     Active Substance: RANITIDINE
     Indication: Product used for unknown indication
     Dosage: 300 MG, QD
     Route: 065
     Dates: start: 2015
  2. RANITIDINE [Suspect]
     Active Substance: RANITIDINE
     Dosage: UNK
     Route: 065
  3. RANITIDINE [Suspect]
     Active Substance: RANITIDINE
     Indication: Gastrooesophageal reflux disease
     Dosage: 300 MG
     Route: 065
     Dates: start: 1999, end: 202001
  4. RANITIDINE HYDROCHLORIDE [Suspect]
     Active Substance: RANITIDINE HYDROCHLORIDE
     Indication: Gastrooesophageal reflux disease
     Dosage: 300 MILLIGRAM
     Route: 065
     Dates: start: 1999, end: 202001
  5. RANITIDINE HYDROCHLORIDE [Suspect]
     Active Substance: RANITIDINE HYDROCHLORIDE
     Dosage: 300 MILLIGRAM
     Route: 065
     Dates: start: 201710, end: 201802
  6. RANITIDINE HYDROCHLORIDE [Suspect]
     Active Substance: RANITIDINE HYDROCHLORIDE
     Dosage: 300 MILLIGRAM
     Route: 065
     Dates: start: 201510, end: 201703
  7. RANITIDINE HYDROCHLORIDE [Suspect]
     Active Substance: RANITIDINE HYDROCHLORIDE
     Dosage: 300 MILLIGRAM
     Route: 065
     Dates: start: 201806
  8. RANITIDINE HYDROCHLORIDE [Suspect]
     Active Substance: RANITIDINE HYDROCHLORIDE
     Dosage: 300 MILLIGRAM, QD, 300 MG, QD (ONCE DAILY MORNING)
     Route: 065
     Dates: start: 201510
  9. NALOXONE HYDROCHLORIDE\TILIDINE HYDROCHLORIDE [Suspect]
     Active Substance: NALOXONE HYDROCHLORIDE\TILIDINE HYDROCHLORIDE
     Indication: Product used for unknown indication
     Dosage: UNK
     Route: 065
  10. DULOXETINE [Suspect]
     Active Substance: DULOXETINE
     Indication: Fibromyalgia
     Dosage: 60 MILLIGRAM, QD, 60 MG, QD (ONCE DAILY, EVENING)
     Route: 065
     Dates: end: 201010
  11. DULOXETINE [Suspect]
     Active Substance: DULOXETINE
     Indication: Pain
  12. DOXEPIN [Suspect]
     Active Substance: DOXEPIN
     Indication: Product used for unknown indication
     Dosage: UNK
     Route: 065
  13. MIRTAZAPINE [Suspect]
     Active Substance: MIRTAZAPINE
     Indication: Product used for unknown indication
     Dosage: UNK
     Route: 065
  14. RANITIDINE [Concomitant]
     Active Substance: RANITIDINE
     Indication: Product used for unknown indication
     Dosage: 300 MG
     Route: 065
     Dates: start: 201802, end: 201806
  15. RANITIDINE HYDROCHLORIDE [Concomitant]
     Active Substance: RANITIDINE HYDROCHLORIDE
     Indication: Product used for unknown indication
     Dosage: 300 MILLIGRAM
     Route: 065
     Dates: start: 201703, end: 201710
  16. OMEPRAZOLE [Concomitant]
     Active Substance: OMEPRAZOLE
     Indication: Product used for unknown indication
     Dosage: 40 MILLIGRAM, QD, 40 MG, QD (1 X 40MG, ONCE DAILY, MORNING)
     Route: 065
     Dates: start: 2010
  17. TRAMADOL HYDROCHLORIDE [Concomitant]
     Active Substance: TRAMADOL HYDROCHLORIDE
     Indication: Product used for unknown indication
     Dosage: UNK, QD, UNK UNK, BID TWICE (MORNING, EVENING)
     Route: 065
  18. OMEBETA [Concomitant]
     Indication: Product used for unknown indication
     Dosage: 20 MILLIGRAM, QD, 20 MG, QD (1 X 20MG, ONCE DAILY, MORNING)
     Route: 065
     Dates: end: 2010
  19. MAPROTILINE [Concomitant]
     Active Substance: MAPROTILINE
     Indication: Product used for unknown indication
     Dosage: UNK
  20. PANTOZOL [Concomitant]
     Active Substance: PANTOPRAZOLE SODIUM
     Indication: Product used for unknown indication
     Dosage: 20 MILLIGRAM, QD, 20 MG, QD (1 X 20MG, ONCE DAILY, MORNING)
     Route: 065
     Dates: start: 2010
  21. DICLOFENAC [Concomitant]
     Active Substance: DICLOFENAC
     Indication: Product used for unknown indication
     Dosage: 225 MILLIGRAM, QD, 75 MG, TID, AS NEEDED 1-2 PER WEEK, TWICE (MORNING,EVENING)
     Route: 065
  22. PANTOPRAZOLE [Concomitant]
     Active Substance: PANTOPRAZOLE
     Indication: Product used for unknown indication
     Dosage: 40 MILLIGRAM, QD, 40 MG, QD (1 X 40MG, ONCE DAILY, MORNING)
     Route: 065
  23. PANTOPRAZOLE [Concomitant]
     Active Substance: PANTOPRAZOLE
     Dosage: 40 MILLIGRAM, QD, 40 MG, QD (1 X 40MG, ONCE DAILY, MORNING)
     Route: 065
     Dates: start: 2010
  24. ASPIRIN [Concomitant]
     Active Substance: ASPIRIN
     Indication: Product used for unknown indication
     Dosage: 100 MILLIGRAM, QD, 100 MG, QD, ONCE DAILY (MORNING)
     Route: 065
  25. IBUPROFEN [Concomitant]
     Active Substance: IBUPROFEN
     Indication: Product used for unknown indication
     Dosage: 1200 MILLIGRAM, QD, 400 MG, TID (FOUR TIMES DAILY)
     Route: 065
  26. IBUPROFEN [Concomitant]
     Active Substance: IBUPROFEN
     Dosage: 1600 MILLIGRAM, QD, 400 MG, QID (FOUR TIMES DAILY)
     Route: 065
  27. DIAZEPAM [Concomitant]
     Active Substance: DIAZEPAM
     Indication: Product used for unknown indication
     Dosage: UNK
     Route: 065
  28. PREGABALIN [Concomitant]
     Active Substance: PREGABALIN
     Indication: Product used for unknown indication
     Dosage: 50 MILLIGRAM, QD, 50 MG, QD (1 X 50MG, ONCE DAILY, MORNING)
     Route: 065
  29. CELEBREX [Concomitant]
     Active Substance: CELECOXIB
     Indication: Product used for unknown indication
     Dosage: 600 MILLIGRAM, QD, 200 MG, TID, THREE TIMES DAILY
     Route: 065
  30. AMITRIPTYLINE [Concomitant]
     Active Substance: AMITRIPTYLINE
     Indication: Product used for unknown indication
     Dosage: UNK, QD, 0.25 X 100MG, ONCE DAILY, MORNING
     Route: 065
  31. MAGNESIUM [Concomitant]
     Active Substance: MAGNESIUM
     Indication: Product used for unknown indication
     Dosage: 1 DOSAGE FORM, QD, 1 DF, QD (1 X 300, ONCE DAILY, MORNING)
     Route: 065
  32. VOLTAREN [Concomitant]
     Active Substance: DICLOFENAC SODIUM
     Indication: Product used for unknown indication
     Dosage: 150 MILLIGRAM, QD, 75 MG, BID (1 X 75MG, TWICE DAILY, MORNING)
     Route: 065
  33. TREVILOR RETARD [Concomitant]
     Active Substance: VENLAFAXINE HYDROCHLORIDE
     Indication: Product used for unknown indication
     Dosage: 1 DOSAGE FORM, QD, 1 DF, QD (1X37.5, ONCE DAILY, MORNING)
     Route: 065
  34. TETRAZEPAM [Concomitant]
     Active Substance: TETRAZEPAM
     Indication: Product used for unknown indication
     Dosage: 1 DOSAGE FORM, QD, 1 DF, QD
     Route: 065
  35. TETRAZEPAM [Concomitant]
     Active Substance: TETRAZEPAM
     Indication: Product used for unknown indication
     Dosage: 1 DOSAGE FORM, QD, 1 DF, QD
     Route: 065
  36. HERBALS\HOPS\VALERIAN [Concomitant]
     Active Substance: HERBALS\HOPS\VALERIAN
     Indication: Product used for unknown indication
     Dosage: UNK, QD
     Route: 065
  37. ESOMEPRAZOLE [Concomitant]
     Active Substance: ESOMEPRAZOLE
     Indication: Product used for unknown indication
     Dosage: 20 MILLIGRAM, QD, 20 MG, QD (1 X 20MG, ONCE DAILY, MORNING)
     Route: 065
  38. BLACK COHOSH [Concomitant]
     Active Substance: BLACK COHOSH
     Indication: Product used for unknown indication
     Dosage: 2 DOSAGE FORM, QD, 1 DF, BID (TWICE, MORNING,EVENING
     Route: 065
  39. BETAMETHASONE DIPROPIONATE\CLOTRIMAZOLE [Concomitant]
     Active Substance: BETAMETHASONE DIPROPIONATE\CLOTRIMAZOLE
     Indication: Product used for unknown indication
     Dosage: UNK
     Route: 065
  40. RAMIPRIL [Concomitant]
     Active Substance: RAMIPRIL
     Indication: Product used for unknown indication
     Dosage: 2.5 MILLIGRAM, QD, 2.5 MG, QD (1 X 2.5MG, ONCE DAILY, MORNING)
     Route: 065

REACTIONS (13)
  - Arrhythmia [Unknown]
  - Suicidal ideation [Unknown]
  - Quality of life decreased [Unknown]
  - Dyspepsia [Not Recovered/Not Resolved]
  - Emotional distress [Unknown]
  - Constipation [Not Recovered/Not Resolved]
  - Abdominal discomfort [Not Recovered/Not Resolved]
  - Diarrhoea [Not Recovered/Not Resolved]
  - Nausea [Not Recovered/Not Resolved]
  - Personality disorder [Unknown]
  - Mental disorder [Unknown]
  - Anxiety disorder [Unknown]
  - Depression [Unknown]

NARRATIVE: CASE EVENT DATE: 20010101
